FAERS Safety Report 11130261 (Version 2)
Quarter: 2015Q2

REPORT INFORMATION
  Report Type: Spontaneous
  Country: JP (occurrence: JP)
  Receive Date: 20150522
  Receipt Date: 20150626
  Transmission Date: 20150821
  Serious: Yes (Other)
  Sender: FDA-Public Use
  Company Number: JP-ABBVIE-15K-087-1393450-00

PATIENT
  Age: 34 Year
  Sex: Male

DRUGS (4)
  1. MESALAZINE [Concomitant]
     Active Substance: MESALAMINE
     Indication: CROHN^S DISEASE
     Dates: start: 20140319
  2. CLOSTRIDIUM BUTYRICUM [Concomitant]
     Active Substance: CLOSTRIDIUM BUTYRICUM SPORES STRAIN M-55
     Indication: CROHN^S DISEASE
     Dates: start: 20140319
  3. ELENTAL [Concomitant]
     Active Substance: MINERALS\VITAMINS
     Indication: CROHN^S DISEASE
     Dates: start: 20140319
  4. HUMIRA [Suspect]
     Active Substance: ADALIMUMAB
     Indication: CROHN^S DISEASE
     Route: 058
     Dates: start: 20140319

REACTIONS (5)
  - Swelling face [Recovering/Resolving]
  - Lymph node pain [Recovering/Resolving]
  - Lymphadenopathy [Recovering/Resolving]
  - Mass [Not Recovered/Not Resolved]
  - Mouth swelling [Not Recovered/Not Resolved]

NARRATIVE: CASE EVENT DATE: 201409
